FAERS Safety Report 4911973-2 (Version None)
Quarter: 2006Q1

REPORT INFORMATION
  Report Type: 
  Country: None (occurrence: None)
  Receive Date: 20060213
  Receipt Date: 20060202
  Transmission Date: 20060701
  Serious: Yes (Hospitalization)
  Sender: FDA-Public Use
  Company Number: 2006016675

PATIENT
  Age: 70 Year
  Sex: Male

DRUGS (11)
  1. NIFEDIPINE [Suspect]
     Indication: ILL-DEFINED DISORDER
     Dosage: 20 MG (DAILY)
  2. GALANTAMINE (GALANTAMINE) [Suspect]
     Indication: ILL-DEFINED DISORDER
     Dosage: 16 MG (DAILY)
     Dates: start: 20040401
  3. SULFASALAZINE [Suspect]
     Indication: ILL-DEFINED DISORDER
     Dosage: 2500 MG (DAILY)
  4. QUINIDINE (QUINIDINE) [Suspect]
     Indication: ILL-DEFINED DISORDER
     Dosage: 300 MG (DAILY)
  5. CO-DYDRAMOL   (DIHYDROCODEINE BITARTRATE, PARACETAMOL) [Suspect]
     Indication: ILL-DEFINED DISORDER
  6. SIMVASTATIN [Suspect]
     Indication: ILL-DEFINED DISORDER
     Dosage: 40 MG (DAILY)
  7. CELECOXIB (CELECOXIB) [Suspect]
     Indication: ILL-DEFINED DISORDER
  8. TAMSULOSIN HCL [Concomitant]
  9. ESOMEPRAZOLE (ESOMEPRAZOLE) [Concomitant]
  10. ASPIRIN [Concomitant]
  11. ATENOLOL [Concomitant]

REACTIONS (4)
  - CHILLS [None]
  - GENERAL PHYSICAL HEALTH DETERIORATION [None]
  - JAUNDICE [None]
  - PYREXIA [None]
